FAERS Safety Report 7718167-6 (Version None)
Quarter: 2011Q3

REPORT INFORMATION
  Report Type: 
  Country: None (occurrence: None)
  Receive Date: 20110830
  Receipt Date: 20110823
  Transmission Date: 20111222
  Serious: Yes (Hospitalization)
  Sender: FDA-Public Use
  Company Number: NZ-ROCHE-798326

PATIENT
  Sex: Female
  Weight: 61 kg

DRUGS (3)
  1. BLINDED TMC435 [Suspect]
     Indication: HEPATITIS C
     Dosage: DOSE:BLINDED
     Route: 048
     Dates: start: 20110802
  2. RIBAVIRIN [Suspect]
     Indication: HEPATITIS C
     Dosage: FREQUENCY:MORNING+EVENING
     Route: 048
     Dates: start: 20110802
  3. PEGINTERFERON ALFA-2A [Suspect]
     Indication: HEPATITIS C
     Route: 058
     Dates: start: 20110802

REACTIONS (1)
  - MIGRAINE [None]
